FAERS Safety Report 21050181 (Version 2)
Quarter: 2022Q3

REPORT INFORMATION
  Report Type: Report from Study
  Country: CN (occurrence: CN)
  Receive Date: 20220706
  Receipt Date: 20220907
  Transmission Date: 20221026
  Serious: Yes (Death, Hospitalization)
  Sender: FDA-Public Use
  Company Number: CN-NOVARTISPH-NVSC2022CN097403

PATIENT
  Age: 67 Year
  Sex: Male
  Weight: 53 kg

DRUGS (3)
  1. TISLELIZUMAB [Suspect]
     Active Substance: TISLELIZUMAB
     Indication: Non-small cell lung cancer
     Dosage: 200 MG, Q3W
     Route: 041
     Dates: start: 20220225, end: 20220415
  2. OCIPERLIMAB [Suspect]
     Active Substance: OCIPERLIMAB
     Indication: Non-small cell lung cancer
     Dosage: 900 MG, Q3W
     Route: 041
     Dates: start: 20220225, end: 20220415
  3. PACLITAXEL [Suspect]
     Active Substance: PACLITAXEL
     Indication: Non-small cell lung cancer
     Dosage: 83 MG, ONCE WEEKLY X6 WEEKS
     Route: 041
     Dates: start: 20220225, end: 20220402

REACTIONS (1)
  - Pneumonitis [Fatal]

NARRATIVE: CASE EVENT DATE: 20220414
